FAERS Safety Report 4616249-9 (Version None)
Quarter: 2005Q1

REPORT INFORMATION
  Report Type: 
  Country: None (occurrence: None)
  Receive Date: 20050321
  Receipt Date: 20050314
  Transmission Date: 20050727
  Serious: Yes (Hospitalization)
  Sender: FDA-Public Use
  Company Number: SUS1-2004-00714

PATIENT
  Age: 46 Year
  Sex: Male

DRUGS (4)
  1. AGRYLIN [Suspect]
     Indication: ESSENTIAL THROMBOCYTHAEMIA
     Dosage: SEE IMAGE
     Dates: start: 20010424, end: 20040701
  2. AGRYLIN [Suspect]
     Indication: ESSENTIAL THROMBOCYTHAEMIA
     Dosage: SEE IMAGE
     Dates: start: 20040712, end: 20040901
  3. ASPIRIN [Concomitant]
  4. PANTOPRAZOLE (PANTOPRAZOLE) [Concomitant]

REACTIONS (42)
  - ABDOMINAL DISCOMFORT [None]
  - ABDOMINAL DISTENSION [None]
  - ABNORMAL BEHAVIOUR [None]
  - APHASIA [None]
  - ASTHENIA [None]
  - BLOOD POTASSIUM DECREASED [None]
  - BONE MARROW DEPRESSION [None]
  - BRAIN MASS [None]
  - BRAIN NEOPLASM [None]
  - CEREBROVASCULAR ACCIDENT [None]
  - COGNITIVE DISORDER [None]
  - CUSHINGOID [None]
  - DECREASED APPETITE [None]
  - DYSCALCULIA [None]
  - DYSGEUSIA [None]
  - DYSLEXIA [None]
  - EARLY SATIETY [None]
  - ERUCTATION [None]
  - FACIAL PALSY [None]
  - FLAT AFFECT [None]
  - HAEMATOCRIT DECREASED [None]
  - HAEMOGLOBIN DECREASED [None]
  - HEADACHE [None]
  - INSOMNIA [None]
  - LIVER FUNCTION TEST ABNORMAL [None]
  - MEAN CELL HAEMOGLOBIN CONCENTRATION INCREASED [None]
  - MEAN CELL VOLUME INCREASED [None]
  - MEMORY IMPAIRMENT [None]
  - MUSCLE SPASMS [None]
  - NAUSEA [None]
  - NEUROLOGICAL SYMPTOM [None]
  - NUCLEAR MAGNETIC RESONANCE IMAGING BRAIN ABNORMAL [None]
  - PLATELET COUNT INCREASED [None]
  - RED BLOOD CELL COUNT DECREASED [None]
  - RED CELL DISTRIBUTION WIDTH INCREASED [None]
  - SPEECH DISORDER [None]
  - STOMATITIS [None]
  - VASCULITIS CEREBRAL [None]
  - VIITH NERVE PARALYSIS [None]
  - VISUAL DISTURBANCE [None]
  - WEIGHT INCREASED [None]
  - WHITE BLOOD CELL COUNT INCREASED [None]
